APPROVED DRUG PRODUCT: ZORVOLEX
Active Ingredient: DICLOFENAC
Strength: 35MG **Federal Register determination that product was not discontinued or withdrawn for safety or effectiveness reasons**
Dosage Form/Route: CAPSULE;ORAL
Application: N204592 | Product #002
Applicant: ZYLA LIFE SCIENCES US INC
Approved: Oct 18, 2013 | RLD: Yes | RS: No | Type: DISCN

PATENTS:
Patent 9180095 | Expires: Apr 23, 2030
Patent 9186328 | Expires: Apr 23, 2030
Patent 8999387 | Expires: Apr 23, 2030
Patent 8679544 | Expires: Apr 23, 2030
Patent 9180096 | Expires: Apr 23, 2030
Patent 9173854 | Expires: Apr 23, 2030
Patent 9017721 | Expires: Apr 23, 2030